FAERS Safety Report 15824115 (Version 8)
Quarter: 2020Q2

REPORT INFORMATION
  Report Type: Spontaneous
  Country: US (occurrence: US)
  Receive Date: 20190114
  Receipt Date: 20200605
  Transmission Date: 20200713
  Serious: Yes (Hospitalization, Other)
  Sender: FDA-Public Use
  Company Number: US-B.I. PHARMACEUTICALS,INC./RIDGEFIELD-2019-BI-001531

PATIENT
  Age: 31 Year
  Sex: Male
  Weight: 141.1 kg

DRUGS (64)
  1. OXYCODONE [Concomitant]
     Active Substance: OXYCODONE
     Dosage: MAX DAILY DOSE: 3TABS
     Route: 048
  2. HYDROCODONE/ACETAMINOPHEN [Concomitant]
     Active Substance: ACETAMINOPHEN\HYDROCODONE
     Indication: PAIN
     Dosage: 7.5-500MG, TAKE 1 TO 2 TABS BY MOUTH EVERY 4-6HRS AS NEEDED FOR PAIN
     Route: 048
  3. HYDROCODONE/ACETAMINOPHEN [Concomitant]
     Active Substance: ACETAMINOPHEN\HYDROCODONE
     Dosage: 7.5-325MG TAB, AS NEEDED FOR PAIN MAX DAILY DOSE 6 TABS
     Route: 048
  4. CIPROFLOXACIN. [Concomitant]
     Active Substance: CIPROFLOXACIN
     Indication: PRODUCT USED FOR UNKNOWN INDICATION
     Route: 048
  5. HIBICLENS [Concomitant]
     Active Substance: CHLORHEXIDINE GLUCONATE
     Indication: PRODUCT USED FOR UNKNOWN INDICATION
     Dosage: 4% LIQUID (LIQ), USE TOPICALLY AS DIRECTED
     Route: 061
  6. LIDOCAINE. [Concomitant]
     Active Substance: LIDOCAINE
     Indication: PRODUCT USED FOR UNKNOWN INDICATION
     Dosage: 5 % PATCH, APPLY 1-2PATCHES AS DIRECTED FOR 12HRS ON AND 12HRS OFF
     Route: 065
  7. AZITHROMYCIN ANHYDROUS. [Concomitant]
     Active Substance: AZITHROMYCIN ANHYDROUS
     Indication: PRODUCT USED FOR UNKNOWN INDICATION
     Dosage: 2 TABS ON DAY 1
     Route: 048
  8. AMOXICILLIN. [Concomitant]
     Active Substance: AMOXICILLIN
     Indication: PRODUCT USED FOR UNKNOWN INDICATION
     Route: 048
  9. FLUCONAZOLE. [Concomitant]
     Active Substance: FLUCONAZOLE
     Indication: PRODUCT USED FOR UNKNOWN INDICATION
     Route: 048
  10. METFORMIN [Concomitant]
     Active Substance: METFORMIN HYDROCHLORIDE
     Dosage: TAKE 2 TABS TWICE DAILY?EXTENDED RELEASE (ER)
     Route: 048
  11. METFORMIN [Concomitant]
     Active Substance: METFORMIN HYDROCHLORIDE
     Dosage: ER 500 4 QD
     Route: 065
  12. OXYCODONE [Concomitant]
     Active Substance: OXYCODONE
     Indication: PAIN
     Dosage: TAKE 1 TO 2 TABS EVERY 4HRS AS NEEDED FOR SEVERE PAIN/ MAX DAILY DOSE: 12 TABS
     Route: 048
  13. OXYCODONE [Concomitant]
     Active Substance: OXYCODONE
     Dosage: MAX DAILY DOSE: 4TABS
     Route: 048
  14. MICONAZOLE NITRATE. [Concomitant]
     Active Substance: MICONAZOLE NITRATE
     Indication: PRODUCT USED FOR UNKNOWN INDICATION
     Dosage: POWDER 2%
     Route: 050
     Dates: start: 20160131, end: 20160318
  15. SMZ-TMP DS [Concomitant]
     Active Substance: SULFAMETHOXAZOLE\TRIMETHOPRIM
     Dosage: 800-160TAB
     Route: 048
  16. MUPIROCIN. [Concomitant]
     Active Substance: MUPIROCIN
     Indication: PRODUCT USED FOR UNKNOWN INDICATION
     Dosage: 2 %, APPLY EXTERNALLY TO AFFECTED AREA
     Route: 050
  17. AMOXICILLIN + CLAV. POTASSIUM [Concomitant]
     Active Substance: AMOXICILLIN\CLAVULANATE POTASSIUM
     Indication: PRODUCT USED FOR UNKNOWN INDICATION
     Dosage: 875-125MG TAB, TAKE 1TAB EVERY 12HRS WITH FOOD
     Route: 048
  18. VOLTAREN [DICLOFENAC] [Concomitant]
     Active Substance: DICLOFENAC SODIUM
     Indication: PRODUCT USED FOR UNKNOWN INDICATION
     Dosage: 1 %, APPLY TO CLEAN, DRY SKIN 3-4TIMES A DAY
     Route: 050
  19. AZITHROMYCIN ANHYDROUS. [Concomitant]
     Active Substance: AZITHROMYCIN ANHYDROUS
     Dosage: 1 TAB ON DAYS 2-5
     Route: 048
  20. CLONAZEPAM. [Concomitant]
     Active Substance: CLONAZEPAM
     Indication: PRODUCT USED FOR UNKNOWN INDICATION
     Dosage: DISSOLVE 1TAB AT BEDTIME/MAX DAILY DOSE:1TAB
     Route: 048
  21. LEVOFLOXACIN. [Concomitant]
     Active Substance: LEVOFLOXACIN
     Indication: PRODUCT USED FOR UNKNOWN INDICATION
     Route: 048
  22. CIPROFLOXACIN. [Concomitant]
     Active Substance: CIPROFLOXACIN
     Route: 048
  23. CYCLOBENZAPRIN [Concomitant]
     Active Substance: CYCLOBENZAPRINE
     Indication: PRODUCT USED FOR UNKNOWN INDICATION
     Dosage: 1/2 TO 1 TAB BY MOUTH AT BEDTIME USE CAUTION WITH HAZARDOUS ACTIVITY
     Route: 048
  24. TRAMADOL. [Concomitant]
     Active Substance: TRAMADOL
     Indication: PAIN
     Dosage: AS NEEDED FOR PAIN MAX DAILY DOSE: 4 TABLETS
     Route: 048
  25. NAPROXEN. [Concomitant]
     Active Substance: NAPROXEN
     Indication: PRODUCT USED FOR UNKNOWN INDICATION
     Route: 048
  26. DOXYCYCLINE MONOHYDRATE [Concomitant]
     Active Substance: DOXYCYCLINE
     Indication: PRODUCT USED FOR UNKNOWN INDICATION
     Route: 048
  27. JARDIANCE [Suspect]
     Active Substance: EMPAGLIFLOZIN
     Indication: TYPE 2 DIABETES MELLITUS
     Route: 048
     Dates: start: 20141125
  28. DIAZEPAM. [Concomitant]
     Active Substance: DIAZEPAM
     Indication: PRODUCT USED FOR UNKNOWN INDICATION
     Dosage: WITH DRESSING CHANGES/MAX DAILY DOSE: 1TAB
     Route: 048
     Dates: start: 20160131, end: 20160318
  29. GABAPENTIN. [Concomitant]
     Active Substance: GABAPENTIN
     Dosage: TAKE 1 CAP IN THE MORNING, 1 AT NOON, 2 AT BEDTIME FOR 3-5DAYS
     Route: 048
  30. GABAPENTIN. [Concomitant]
     Active Substance: GABAPENTIN
     Dosage: THEN 2 CAPS 3X/DAY THEREAFTER/ MAX 6CAPS/DAY
     Route: 048
  31. LANTUS [Concomitant]
     Active Substance: INSULIN GLARGINE
     Indication: PRODUCT USED FOR UNKNOWN INDICATION
     Dosage: INJECT AT BEDTIME
     Route: 058
  32. DOXYCYCLINE HYCLATE. [Concomitant]
     Active Substance: DOXYCYCLINE HYCLATE
     Indication: PRODUCT USED FOR UNKNOWN INDICATION
     Dosage: TAKE 1CAP 2X/DAY UNTIL GONE
     Route: 048
     Dates: start: 20160318, end: 20160323
  33. EYE ITCH RELIEF [Concomitant]
     Active Substance: KETOTIFEN FUMARATE
     Indication: PRODUCT USED FOR UNKNOWN INDICATION
     Dosage: 0.025%, INSTILL 1 DROP INTO EACH EYE; SOLUTION (SOL)
     Route: 031
  34. METFORMIN [Concomitant]
     Active Substance: METFORMIN HYDROCHLORIDE
     Indication: PRODUCT USED FOR UNKNOWN INDICATION
     Route: 048
     Dates: start: 20160131
  35. HYDROCODONE/ACETAMINOPHEN [Concomitant]
     Active Substance: ACETAMINOPHEN\HYDROCODONE
     Dosage: 5-325MG TAB/ AVOID ADDITIONAL ACETAMINOPHEN WHILE TAKING THIS MEDICATION/ MAX DAILY DOSE 4 TABS
     Route: 048
  36. CHANTIX [Concomitant]
     Active Substance: VARENICLINE TARTRATE
     Indication: PRODUCT USED FOR UNKNOWN INDICATION
     Dosage: 0.5+1MG STARTER PAK; TAKE AS DIRECTED
     Route: 065
  37. CHANTIX [Concomitant]
     Active Substance: VARENICLINE TARTRATE
     Dosage: TAKE AS DIRECTED; CONTINUING PA
     Route: 065
  38. CLINDAMYCIN. [Concomitant]
     Active Substance: CLINDAMYCIN
     Indication: PRODUCT USED FOR UNKNOWN INDICATION
     Route: 048
  39. BUPROPION. [Concomitant]
     Active Substance: BUPROPION
     Indication: PRODUCT USED FOR UNKNOWN INDICATION
     Dosage: EXTENDED RELEASE/ SUSTAINED RELEASE (ER/SR)?TAKE 1 TAB DAILY AS DIRECTED AT 7AM AND 2PM
     Route: 048
  40. PHISOHEX [Concomitant]
     Active Substance: HEXACHLOROPHENE
     Indication: PRODUCT USED FOR UNKNOWN INDICATION
     Dosage: 3% LIQUID (LIQ) SHOWER
     Route: 065
  41. GABAPENTIN. [Concomitant]
     Active Substance: GABAPENTIN
     Indication: PRODUCT USED FOR UNKNOWN INDICATION
     Dosage: TAKE 1 CAP AT BEDTIME FOR 5DAYS
     Route: 048
  42. PREDNISONE. [Concomitant]
     Active Substance: PREDNISONE
     Indication: PRODUCT USED FOR UNKNOWN INDICATION
     Route: 048
  43. CLOTRIMAZOLE AND BETAMETHASONE [Concomitant]
     Active Substance: BETAMETHASONE\CLOTRIMAZOLE
     Indication: PRODUCT USED FOR UNKNOWN INDICATION
     Dosage: 1-0.05 %, APPLY EXTERNALLY TO AFFECTED AREA
     Route: 050
  44. ATORVASTATIN [Concomitant]
     Active Substance: ATORVASTATIN
     Indication: PRODUCT USED FOR UNKNOWN INDICATION
     Route: 048
  45. NYSTATIN. [Concomitant]
     Active Substance: NYSTATIN
     Indication: PRODUCT USED FOR UNKNOWN INDICATION
     Dosage: APPLY EXTERNALLY TO THE AFFECTED AREA
     Route: 050
  46. OXYCODONE [Concomitant]
     Active Substance: OXYCODONE
     Dosage: TAKE 1TAB ON MON-WED-FRI WITH DRESSING CHANGE/MAX DAILY DOSE:1TAB
     Route: 048
  47. VITAMIN D2 [Concomitant]
     Active Substance: ERGOCALCIFEROL
     Indication: PRODUCT USED FOR UNKNOWN INDICATION
     Route: 048
  48. BENZONATATE. [Concomitant]
     Active Substance: BENZONATATE
     Indication: PRODUCT USED FOR UNKNOWN INDICATION
     Route: 048
  49. BENZONATATE. [Concomitant]
     Active Substance: BENZONATATE
     Dosage: TAKE 1 TO 2 CAPS BY MOUTH AT BEDTIME
     Route: 048
  50. IBUPROFEN. [Concomitant]
     Active Substance: IBUPROFEN
     Indication: PRODUCT USED FOR UNKNOWN INDICATION
     Route: 048
  51. GABAPENTIN. [Concomitant]
     Active Substance: GABAPENTIN
     Dosage: THEN TWO AT BEDTIME/ MAX DAILY DOSE: 2 CAPS
     Route: 048
  52. LANTUS [Concomitant]
     Active Substance: INSULIN GLARGINE
     Dosage: INJECT 18-20UNITS IN THE EVENING?INJECT 22-26UNITS EVER EVENING + MAY SELF TITRATE
     Route: 058
  53. ASPIRIN. [Concomitant]
     Active Substance: ASPIRIN
     Indication: PRODUCT USED FOR UNKNOWN INDICATION
     Dosage: ENTERIC COATED (EC)
     Route: 048
  54. LOTEMAX [Concomitant]
     Active Substance: LOTEPREDNOL ETABONATE
     Indication: PRODUCT USED FOR UNKNOWN INDICATION
     Dosage: 0.5 %, INSTILL 1 DROP INTO EACH EYE
     Route: 031
  55. VICTOZA [Concomitant]
     Active Substance: LIRAGLUTIDE
     Indication: PRODUCT USED FOR UNKNOWN INDICATION
     Dosage: 18MG/3ML, INJECT STARTING 0.6MG FOR 1WEEK AND THEN INJECT 1.2 MG FOR 2 WEEKS AND THEN INJECT 1.8MG
     Route: 065
  56. LOSARTAN. [Concomitant]
     Active Substance: LOSARTAN
     Indication: PRODUCT USED FOR UNKNOWN INDICATION
     Route: 048
  57. FENTANYL. [Concomitant]
     Active Substance: FENTANYL
     Indication: PRODUCT USED FOR UNKNOWN INDICATION
     Dosage: 40 MCG/ACTIVATION PATCH AS DIRECTED
     Route: 062
     Dates: start: 20160318
  58. JARDIANCE [Suspect]
     Active Substance: EMPAGLIFLOZIN
     Route: 048
     Dates: start: 20160131, end: 20160318
  59. HYDROCODONE/ACETAMINOPHEN [Concomitant]
     Active Substance: ACETAMINOPHEN\HYDROCODONE
     Dosage: 7.5-325MG TAB/ TAKE 1-2 TABS EVERY 4-6HRS/MAX DAILY DOSE:6 TABS
     Route: 048
  60. SMZ-TMP DS [Concomitant]
     Active Substance: SULFAMETHOXAZOLE\TRIMETHOPRIM
     Indication: PRODUCT USED FOR UNKNOWN INDICATION
     Dosage: 800-160 TAB
     Route: 048
  61. GABAPENTIN. [Concomitant]
     Active Substance: GABAPENTIN
     Dosage: THEN 2 IN THE MORNING, 1 AT NOON, 2 AT BEDTIME FOR 3-5DAYS
     Route: 048
  62. DOXYCYCLINE HYCLATE. [Concomitant]
     Active Substance: DOXYCYCLINE HYCLATE
     Dosage: TAKE 2CAPS AS ONE TIME DOSE
     Route: 048
  63. PREDNISONE. [Concomitant]
     Active Substance: PREDNISONE
     Dosage: TAKE 6TABS ON DAY1 THEN TAKE 5TABS ON DAY2, 4TABS DAY3, 3TABS DAY4, 2TABS DAY5, 1 TAB DAY6
     Route: 048
  64. PROAIR HFA [Concomitant]
     Active Substance: ALBUTEROL SULFATE
     Indication: PRODUCT USED FOR UNKNOWN INDICATION
     Dosage: INHALE 2 PUFFS BY MOUTH EVERY 4-6HRS AS NEEDED; AEROSOL (AER)
     Route: 055

REACTIONS (2)
  - Sepsis [Unknown]
  - Fournier^s gangrene [Unknown]

NARRATIVE: CASE EVENT DATE: 20160108
